FAERS Safety Report 5656919-7 (Version None)
Quarter: 2008Q1

REPORT INFORMATION
  Report Type: 
  Country: None (occurrence: None)
  Receive Date: 20080219
  Receipt Date: 20071026
  Transmission Date: 20080703
  Serious: No
  Sender: FDA-Public Use
  Company Number: WAES 0710USA05767

PATIENT
  Age: 78 Year
  Sex: Male

DRUGS (6)
  1. JANUVIA [Suspect]
     Indication: TYPE 2 DIABETES MELLITUS
     Dosage: 100 MG/DAILY/PO ; DAILY/PO
     Route: 048
     Dates: start: 20071012, end: 20071024
  2. JANUVIA [Suspect]
     Indication: TYPE 2 DIABETES MELLITUS
     Dosage: 100 MG/DAILY/PO ; DAILY/PO
     Route: 048
     Dates: start: 20071024
  3. AVAPRO [Concomitant]
  4. CARDIZEM [Concomitant]
  5. COUMADIN [Concomitant]
  6. LIPITOR [Concomitant]

REACTIONS (3)
  - DYSPNOEA [None]
  - ILL-DEFINED DISORDER [None]
  - WRONG TECHNIQUE IN DRUG USAGE PROCESS [None]
